FAERS Safety Report 10953073 (Version 1)
Quarter: 2015Q1

REPORT INFORMATION
  Report Type: Spontaneous
  Country: US (occurrence: US)
  Receive Date: 20150325
  Receipt Date: 20150325
  Transmission Date: 20150721
  Serious: Yes (Death)
  Sender: FDA-Public Use
  Company Number: US-CIPLA LTD.-2015US02280

PATIENT

DRUGS (5)
  1. LAMOTRIGINE. [Suspect]
     Active Substance: LAMOTRIGINE
  2. LORAZEPAM. [Suspect]
     Active Substance: LORAZEPAM
  3. ESCITALOPRAM [Suspect]
     Active Substance: ESCITALOPRAM OXALATE
  4. LOVASTATIN. [Suspect]
     Active Substance: LOVASTATIN
  5. ZONISAMIDE. [Suspect]
     Active Substance: ZONISAMIDE

REACTIONS (1)
  - Completed suicide [Fatal]
